FAERS Safety Report 5769889-8 (Version None)
Quarter: 2008Q2

REPORT INFORMATION
  Report Type: 
  Country: None (occurrence: None)
  Receive Date: 20080613
  Receipt Date: 20080412
  Transmission Date: 20081010
  Serious: No
  Sender: FDA-Public Use
  Company Number: US-ABBOTT-08P-163-0447041-00

PATIENT
  Sex: Male

DRUGS (2)
  1. HUMIRA [Suspect]
     Indication: PSORIATIC ARTHROPATHY
     Route: 058
     Dates: start: 20080411
  2. DIPHENHYDRAMINE HYDROCHLORIDE [Suspect]
     Indication: HYPERSENSITIVITY
     Route: 048

REACTIONS (1)
  - EPISTAXIS [None]
